FAERS Safety Report 8215286-5 (Version None)
Quarter: 2012Q1

REPORT INFORMATION
  Report Type: 
  Country: None (occurrence: None)
  Receive Date: 20120314
  Receipt Date: 20120307
  Transmission Date: 20120608
  Serious: No
  Sender: FDA-Public Use
  Company Number: ADR-2012-00550

PATIENT
  Age: 8 Year
  Sex: Female

DRUGS (1)
  1. LIORESAL [Suspect]
     Indication: MUSCLE SPASTICITY

REACTIONS (3)
  - IMPLANT SITE INFECTION [None]
  - FLUCTUANCE [None]
  - TENDERNESS [None]
